FAERS Safety Report 19475201 (Version 1)
Quarter: 2021Q2

REPORT INFORMATION
  Report Type: Spontaneous
  Country: FR (occurrence: FR)
  Receive Date: 20210630
  Receipt Date: 20210630
  Transmission Date: 20210717
  Serious: Yes (Hospitalization, Other)
  Sender: FDA-Public Use
  Company Number: FR-AUROBINDO-AUR-APL-2021-026896

PATIENT
  Age: 72 Year
  Sex: Male

DRUGS (1)
  1. ATENOLOL. [Suspect]
     Active Substance: ATENOLOL
     Indication: SELF-MEDICATION
     Dosage: 50 MILLIGRAM
     Route: 048
     Dates: start: 20210424, end: 20210424

REACTIONS (6)
  - Product administration error [Recovered/Resolved]
  - Wrong drug [Recovered/Resolved]
  - Malaise [Recovered/Resolved]
  - Self-medication [Recovered/Resolved]
  - Bradycardia [Recovered/Resolved]
  - Hypotension [Recovered/Resolved]

NARRATIVE: CASE EVENT DATE: 20210424
